FAERS Safety Report 20416457 (Version 1)
Quarter: 2022Q1

REPORT INFORMATION
  Report Type: Spontaneous
  Country: FR (occurrence: FR)
  Receive Date: 20220202
  Receipt Date: 20220202
  Transmission Date: 20220423
  Serious: Yes (Other)
  Sender: FDA-Public Use
  Company Number: FR-Accord-250641

PATIENT
  Age: 15 Year
  Sex: Male

DRUGS (2)
  1. VORICONAZOLE [Interacting]
     Active Substance: VORICONAZOLE
     Indication: Bronchopulmonary aspergillosis
     Dosage: UNK
  2. ETHAMBUTOL [Interacting]
     Active Substance: ETHAMBUTOL HYDROCHLORIDE
     Indication: Pulmonary tuberculosis
     Dosage: 22.2 MG/KG, 1X/DAY (INTRODUCED TWO MONTHS LATER)

REACTIONS (3)
  - Drug interaction [Unknown]
  - Toxic optic neuropathy [Recovered/Resolved with Sequelae]
  - Neuropathy peripheral [Recovered/Resolved]
